FAERS Safety Report 8974095 (Version 1)
Quarter: 2012Q4

REPORT INFORMATION
  Report Type: Spontaneous
  Country: US (occurrence: None)
  Receive Date: 20121217
  Receipt Date: 20121217
  Transmission Date: 20130627
  Serious: Yes (Other)
  Sender: FDA-Public Use
  Company Number: None

PATIENT
  Sex: Female
  Weight: 119.84 kg

DRUGS (1)
  1. FONDAPARINUX SODIUM [Suspect]
     Indication: DVT PROPHYLAXIS
     Dosage: 5mg; once/day; 057
     Route: 048
     Dates: start: 20120731, end: 20120802

REACTIONS (2)
  - Drug eruption [None]
  - Rash papular [None]
